FAERS Safety Report 11727119 (Version 4)
Quarter: 2017Q4

REPORT INFORMATION
  Report Type: Spontaneous
  Country: US (occurrence: US)
  Receive Date: 20151112
  Receipt Date: 20171003
  Transmission Date: 20180320
  Serious: Yes (Hospitalization)
  Sender: FDA-Public Use
  Company Number: US-NOVOPROD-469912

PATIENT
  Age: 60 Year
  Sex: Female
  Weight: 54.43 kg

DRUGS (6)
  1. NOVOLOG [Suspect]
     Active Substance: INSULIN ASPART
     Indication: TYPE 1 DIABETES MELLITUS
     Dosage: UNKNOWN
     Route: 058
  2. NOVOLOG [Suspect]
     Active Substance: INSULIN ASPART
     Indication: TYPE 1 DIABETES MELLITUS
     Dosage: 4 U, TID BEFORE BREAKFAST, LUNCH AND DINNER
     Route: 058
     Dates: start: 20151003
  3. VESICARE [Concomitant]
     Active Substance: SOLIFENACIN SUCCINATE
     Indication: PRODUCT USED FOR UNKNOWN INDICATION
  4. LANTUS [Concomitant]
     Active Substance: INSULIN GLARGINE
     Indication: TYPE 1 DIABETES MELLITUS
  5. IRBESARTAN. [Concomitant]
     Active Substance: IRBESARTAN
     Indication: HYPERTENSION
     Dosage: 75 MG, QD
  6. LEVOTHYROXINE. [Concomitant]
     Active Substance: LEVOTHYROXINE
     Indication: HYPOTHYROIDISM
     Dosage: 137 ?G, QD

REACTIONS (17)
  - Diabetic coma [Unknown]
  - Alpha haemolytic streptococcal infection [Unknown]
  - Constipation [Unknown]
  - Thrombocytopenia [Unknown]
  - Hyperkalaemia [Unknown]
  - Acute kidney injury [Recovering/Resolving]
  - Diabetic complication [Unknown]
  - Device failure [Unknown]
  - Neuropathy peripheral [Not Recovered/Not Resolved]
  - Urinary tract infection bacterial [Unknown]
  - Klebsiella infection [Unknown]
  - Diabetes mellitus inadequate control [Unknown]
  - Rhabdomyolysis [Unknown]
  - Liver function test increased [Unknown]
  - Metabolic encephalopathy [Recovered/Resolved]
  - Cholelithiasis [Unknown]
  - Diabetic ketoacidosis [Recovered/Resolved]

NARRATIVE: CASE EVENT DATE: 201510
